FAERS Safety Report 15481777 (Version 1)
Quarter: 2018Q4

REPORT INFORMATION
  Report Type: Other
  Country: TR (occurrence: TR)
  Receive Date: 20181010
  Receipt Date: 20181010
  Transmission Date: 20190205
  Serious: Yes (Hospitalization, Other)
  Sender: FDA-Public Use
  Company Number: TR-DEXPHARM-20180766

PATIENT
  Age: 80 Year
  Sex: Female

DRUGS (8)
  1. PREDNISONE. [Concomitant]
     Active Substance: PREDNISONE
  2. SULFASALAZINE. [Interacting]
     Active Substance: SULFASALAZINE
  3. RIVAROXABAN [Concomitant]
     Active Substance: RIVAROXABAN
  4. METHOTREXATE. [Suspect]
     Active Substance: METHOTREXATE
  5. IBUPROFEN. [Interacting]
     Active Substance: IBUPROFEN
  6. CARVADILOL [Concomitant]
  7. LANSOPRAZOLE. [Interacting]
     Active Substance: LANSOPRAZOLE
  8. AMLODIPINE [Concomitant]
     Active Substance: AMLODIPINE BESYLATE

REACTIONS (2)
  - Toxicity to various agents [Recovered/Resolved]
  - Drug interaction [Recovered/Resolved]
